FAERS Safety Report 7910996 (Version 6)
Quarter: 2014Q1

REPORT INFORMATION
  Report Type: Report from Study
  Country: CA (occurrence: CA)
  Receive Date: 20110422
  Receipt Date: 20140318
  Transmission Date: 20141002
  Serious: Yes (Other)
  Sender: FDA-Public Use
  Company Number: PHHY2011CA18868

PATIENT
  Sex: Female

DRUGS (1)
  1. SANDOSTATIN LAR [Suspect]
     Indication: ACROMEGALY
     Dosage: 20 MG, EVERY 4 WEEKS
     Route: 030
     Dates: start: 20040710

REACTIONS (5)
  - Cystitis [Unknown]
  - Dysuria [Unknown]
  - Influenza [Unknown]
  - Hypothermia [Not Recovered/Not Resolved]
  - Headache [Unknown]
